FAERS Safety Report 8001939-0 (Version None)
Quarter: 2011Q4

REPORT INFORMATION
  Report Type: 
  Country: None (occurrence: None)
  Receive Date: 20111220
  Receipt Date: 20111130
  Transmission Date: 20120403
  Serious: Yes (Hospitalization, Other)
  Sender: FDA-Public Use
  Company Number: JPI-P-017946

PATIENT
  Age: 59 Year
  Sex: Female

DRUGS (4)
  1. LISINOPRIL [Concomitant]
  2. XYREM [Suspect]
     Indication: CATAPLEXY
     Dosage: 4.5 GM (2.25 GM, 2 IN 1 D), ORAL; ORAL; 6 GM (3 GM, 2 IN 1 D), ORAL
     Route: 048
     Dates: start: 20021226
  3. XYREM [Suspect]
     Indication: CATAPLEXY
     Dosage: 4.5 GM (2.25 GM, 2 IN 1 D), ORAL; ORAL; 6 GM (3 GM, 2 IN 1 D), ORAL
     Route: 048
     Dates: start: 20100517
  4. FLUOXETINE HYDROCHLORIDE [Concomitant]

REACTIONS (6)
  - ROTATOR CUFF SYNDROME [None]
  - DRUG INEFFECTIVE [None]
  - DEPRESSION [None]
  - SOMNOLENCE [None]
  - ARTHRITIS [None]
  - HUNGER [None]
